FAERS Safety Report 7094843-6 (Version None)
Quarter: 2010Q4

REPORT INFORMATION
  Report Type: 
  Country: None (occurrence: None)
  Receive Date: 20101111
  Receipt Date: 20101104
  Transmission Date: 20110411
  Serious: Yes (Hospitalization, Other)
  Sender: FDA-Public Use
  Company Number: JP-BIOGENIDEC-2009BI032294

PATIENT
  Age: 31 Year
  Sex: Female

DRUGS (4)
  1. AVONEX [Suspect]
     Indication: RELAPSING-REMITTING MULTIPLE SCLEROSIS
     Route: 030
     Dates: start: 20090910, end: 20090917
  2. AVONEX [Suspect]
     Route: 030
     Dates: start: 20090926, end: 20100916
  3. NAIXAN [Concomitant]
     Dates: start: 20090910, end: 20100916
  4. ALESION [Concomitant]
     Dates: start: 20100815, end: 20100923

REACTIONS (3)
  - ANGIOSARCOMA [None]
  - METASTASES TO LUNG [None]
  - MULTIPLE SCLEROSIS RELAPSE [None]
